FAERS Safety Report 4399044-8 (Version None)
Quarter: 2004Q3

REPORT INFORMATION
  Report Type: 
  Country: None (occurrence: None)
  Receive Date: 20040712
  Receipt Date: 20040617
  Transmission Date: 20050211
  Serious: Yes (Hospitalization, Other)
  Sender: FDA-Public Use
  Company Number: USA040259441

PATIENT
  Age: 84 Year
  Sex: Female

DRUGS (5)
  1. FORTEO [Suspect]
     Dates: start: 20030501
  2. PREDNISONE [Concomitant]
  3. ADVAIR DISKUS 100/50 [Concomitant]
  4. ATACAND [Concomitant]
  5. NEXIUM [Concomitant]

REACTIONS (4)
  - BACK PAIN [None]
  - FALL [None]
  - FRACTURED SACRUM [None]
  - PUBIC RAMI FRACTURE [None]
